FAERS Safety Report 23510546 (Version 1)
Quarter: 2024Q1

REPORT INFORMATION
  Report Type: Spontaneous
  Country: US (occurrence: US)
  Receive Date: 20240211
  Receipt Date: 20240211
  Transmission Date: 20240409
  Serious: No
  Sender: FDA-Public Use
  Company Number: US-AIMMUNE THERAPEUTICS, INC.-2023AIMT00980

PATIENT

DRUGS (4)
  1. PALFORZIA [Suspect]
     Active Substance: PEANUT
     Indication: Food allergy
     Dosage: IDE (0.5MG-6MG), ONCE
     Route: 048
     Dates: start: 20230815, end: 20230815
  2. PALFORZIA [Suspect]
     Active Substance: PEANUT
     Dosage: IDE (0.5MG-6MG), ONCE, LAST DOSE PRIOR EVENT EAR INFECTION
     Route: 048
     Dates: start: 20230815, end: 20230815
  3. PALFORZIA [Suspect]
     Active Substance: PEANUT
     Dosage: IDE (0.5MG-6MG), ONCE
     Route: 048
     Dates: start: 20230912, end: 20230912
  4. PALFORZIA [Suspect]
     Active Substance: PEANUT
     Dosage: IDE (0.5MG-6MG), ONCE, LAST DOSE PRIOR EVENT SICKNESS
     Route: 048
     Dates: start: 20230912, end: 20230912

REACTIONS (2)
  - Ear infection [Unknown]
  - Illness [Unknown]
